FAERS Safety Report 11910988 (Version 1)
Quarter: 2016Q1

REPORT INFORMATION
  Report Type: Report from Study
  Country: US (occurrence: US)
  Receive Date: 20160112
  Receipt Date: 20160112
  Transmission Date: 20160526
  Serious: Yes (Other)
  Sender: FDA-Public Use
  Company Number: US-BAXALTA-2015BLT003647

PATIENT
  Age: 67 Year
  Sex: Female
  Weight: 55.9 kg

DRUGS (1)
  1. HYQVIA [Suspect]
     Active Substance: HUMAN IMMUNOGLOBULIN G\HYALURONIDASE RECOMBINANT HUMAN
     Indication: IMMUNODEFICIENCY COMMON VARIABLE
     Dosage: 25 G, EVERY 3 WK
     Route: 058
     Dates: start: 20150324

REACTIONS (9)
  - Pyrexia [Recovering/Resolving]
  - Paraesthesia [Recovering/Resolving]
  - Pruritus [Recovering/Resolving]
  - Copper deficiency [Recovering/Resolving]
  - Infection [Unknown]
  - Contusion [Recovering/Resolving]
  - White blood cell count decreased [Unknown]
  - Petechiae [Recovering/Resolving]
  - Night sweats [Recovering/Resolving]

NARRATIVE: CASE EVENT DATE: 201506
